FAERS Safety Report 5669456-0 (Version None)
Quarter: 2008Q1

REPORT INFORMATION
  Report Type: 
  Country: None (occurrence: None)
  Receive Date: 20080317
  Receipt Date: 20080307
  Transmission Date: 20080703
  Serious: Yes (Other)
  Sender: FDA-Public Use
  Company Number: B0512239A

PATIENT
  Age: 52 Year
  Sex: Female
  Weight: 60 kg

DRUGS (1)
  1. ZYBAN [Suspect]
     Dosage: 150MG TWICE PER DAY
     Dates: start: 20080214, end: 20080305

REACTIONS (7)
  - AURA [None]
  - CONVULSION [None]
  - DISORIENTATION [None]
  - GRAND MAL CONVULSION [None]
  - PHARMACEUTICAL PRODUCT COMPLAINT [None]
  - POSTICTAL STATE [None]
  - URINARY INCONTINENCE [None]
